FAERS Safety Report 8459026-3 (Version None)
Quarter: 2012Q2

REPORT INFORMATION
  Report Type: 
  Country: None (occurrence: None)
  Receive Date: 20120622
  Receipt Date: 20120618
  Transmission Date: 20120825
  Serious: Yes (Hospitalization, Congenital Anomaly, Other)
  Sender: FDA-Public Use
  Company Number: US-PFIZER INC-2012038215

PATIENT
  Sex: Female
  Weight: 3.42 kg

DRUGS (8)
  1. ZOLOFT [Suspect]
     Indication: DEPRESSION
     Dosage: UNK
     Route: 064
  2. SYNTHROID [Concomitant]
     Indication: HYPOTHYROIDISM
     Dosage: 50 UG, UNK
     Route: 064
  3. DOCUSATE SODIUM [Concomitant]
     Dosage: UNK
     Route: 064
  4. MULTI-VITAMINS [Concomitant]
     Dosage: UNK
     Route: 064
  5. ASCORBIC ACID [Concomitant]
     Dosage: 500 MG, 1X/DAY
     Route: 064
  6. FOLIC ACID [Concomitant]
     Dosage: 1 MG, 1X/DAY
     Route: 064
  7. IRON [Concomitant]
     Dosage: UNK
     Route: 064
  8. TRIAMCINOLONE ACETONIDE [Concomitant]
     Dosage: UNK
     Route: 064

REACTIONS (13)
  - HYPOPLASTIC RIGHT HEART SYNDROME [None]
  - PYELOCALIECTASIS [None]
  - COW'S MILK INTOLERANCE [None]
  - PULMONARY ARTERY ATRESIA [None]
  - RIGHT VENTRICULAR HYPERTROPHY [None]
  - CONGENITAL HIP DEFORMITY [None]
  - ATRIAL SEPTAL DEFECT [None]
  - TRICUSPID VALVE INCOMPETENCE [None]
  - MATERNAL EXPOSURE TIMING UNSPECIFIED [None]
  - CLEFT PALATE [None]
  - PULMONARY VALVE STENOSIS [None]
  - OTITIS MEDIA CHRONIC [None]
  - PATENT DUCTUS ARTERIOSUS [None]
